FAERS Safety Report 14145498 (Version 1)
Quarter: 2017Q4

REPORT INFORMATION
  Report Type: Spontaneous
  Country: US (occurrence: US)
  Receive Date: 20171030
  Receipt Date: 20171030
  Transmission Date: 20180321
  Serious: Yes (Hospitalization)
  Sender: FDA-Public Use
  Company Number: None

PATIENT
  Age: 45 Year
  Sex: Female
  Weight: 74.25 kg

DRUGS (1)
  1. ESTRADIOL. [Suspect]
     Active Substance: ESTRADIOL
     Indication: HORMONE REPLACEMENT THERAPY
     Dosage: ?          QUANTITY:1 TABLET(S);?
     Route: 048
     Dates: start: 20171014, end: 20171016

REACTIONS (8)
  - Mental impairment [None]
  - Dizziness [None]
  - Speech disorder [None]
  - Blood pressure decreased [None]
  - Vomiting [None]
  - Migraine [None]
  - Heart rate decreased [None]
  - Hypoaesthesia [None]

NARRATIVE: CASE EVENT DATE: 20171016
